FAERS Safety Report 26124875 (Version 1)
Quarter: 2025Q4

REPORT INFORMATION
  Report Type: Spontaneous
  Country: IR (occurrence: IR)
  Receive Date: 20251205
  Receipt Date: 20251205
  Transmission Date: 20260117
  Serious: Yes (Hospitalization, Other)
  Sender: STRIDES
  Company Number: IR-STRIDES ARCOLAB LIMITED-2025SP015010

PATIENT
  Age: 46 Year
  Sex: Male

DRUGS (9)
  1. PREDNISOLONE [Suspect]
     Active Substance: PREDNISOLONE
     Indication: Pneumonia lipoid
     Dosage: 30 MILLIGRAM
     Route: 048
  2. PREDNISOLONE [Suspect]
     Active Substance: PREDNISOLONE
     Dosage: TAPERED DOSE FOR 2 MONTHS
     Route: 048
  3. CEFEPIME [Suspect]
     Active Substance: CEFEPIME HYDROCHLORIDE
     Indication: Pneumonia lipoid
     Dosage: 1 GRAM, EVERY 8 HOURS
     Route: 042
  4. CEFEPIME [Suspect]
     Active Substance: CEFEPIME HYDROCHLORIDE
     Indication: Antibiotic therapy
  5. CLINDAMYCIN [Suspect]
     Active Substance: CLINDAMYCIN
     Indication: Pneumonia lipoid
     Dosage: 600 MILLIGRAM, EVERY 8 HOURS
     Route: 042
  6. CLINDAMYCIN [Suspect]
     Active Substance: CLINDAMYCIN
     Indication: Antibiotic therapy
  7. HYDROCORTISONE [Suspect]
     Active Substance: HYDROCORTISONE
     Indication: Pneumonia lipoid
     Dosage: 100 MILLIGRAM, EVERY 8 HOURS
     Route: 042
  8. PIPERACILLIN SODIUM\TAZOBACTAM SODIUM [Suspect]
     Active Substance: PIPERACILLIN SODIUM\TAZOBACTAM SODIUM
     Indication: Pneumonia lipoid
     Dosage: 4.5 GRAM, EVERY 6 HRS
     Route: 042
  9. LINEZOLID [Suspect]
     Active Substance: LINEZOLID
     Indication: Pneumonia lipoid
     Dosage: FOR 10 DAYS
     Route: 042

REACTIONS (2)
  - Condition aggravated [Recovering/Resolving]
  - Off label use [Unknown]
